FAERS Safety Report 21614567 (Version 3)
Quarter: 2023Q2

REPORT INFORMATION
  Report Type: Report from Study
  Country: US (occurrence: US)
  Receive Date: 20221118
  Receipt Date: 20230619
  Transmission Date: 20230721
  Serious: No
  Sender: FDA-Public Use
  Company Number: US-002147023-NVSC2022US259949

PATIENT
  Age: 51 Year
  Sex: Female

DRUGS (2)
  1. COSENTYX [Suspect]
     Active Substance: SECUKINUMAB
     Indication: Psoriasis
     Dosage: 300 MG, QW (INJECT TWO PENS (300 MG) WEEKLY ON WEEKS 1,2,3, AND 4)
     Route: 058
     Dates: start: 20200812
  2. COSENTYX [Suspect]
     Active Substance: SECUKINUMAB
     Dosage: 300 MG, QMO, (INJECT TWO PENS (300MG) ONCE EVERY FOUR WEEKS
     Route: 058

REACTIONS (8)
  - Peripheral swelling [Unknown]
  - Joint swelling [Unknown]
  - Melanocytic naevus [Unknown]
  - Haemangioma [Unknown]
  - Lentigo [Unknown]
  - Seborrhoeic keratosis [Unknown]
  - COVID-19 [Unknown]
  - Psoriasis [Unknown]

NARRATIVE: CASE EVENT DATE: 20220412
